FAERS Safety Report 14546299 (Version 2)
Quarter: 2018Q1

REPORT INFORMATION
  Report Type: Spontaneous
  Country: TR (occurrence: TR)
  Receive Date: 20180219
  Receipt Date: 20180309
  Transmission Date: 20180509
  Serious: Yes (Hospitalization)
  Sender: FDA-Public Use
  Company Number: TR-CIPLA LTD.-2017TR08652

PATIENT

DRUGS (13)
  1. METHYLPREDNISOLONE. [Suspect]
     Active Substance: METHYLPREDNISOLONE
     Dosage: UNK, 2-3 TIMES A YEAR
     Route: 048
  2. IPRATROPIUM BROMIDE W/SALBUTAMOL [Concomitant]
     Active Substance: ALBUTEROL\IPRATROPIUM BROMIDE
     Indication: CHRONIC OBSTRUCTIVE PULMONARY DISEASE
     Dosage: 0.5 MG+ 2.5 MG/2.5 ML NEBULES 4X1
  3. CANDESARTAN CILEXETIL/HYDROCHLOORTHIAZIDE [Concomitant]
     Indication: HYPERTENSION
     Dosage: 16 MG/12.5 MG, QD, FOR 10 YEARS
     Route: 065
  4. DOXAZOSIN [Concomitant]
     Active Substance: DOXAZOSIN\DOXAZOSIN MESYLATE
     Indication: OEDEMA PERIPHERAL
  5. FUROSEMIDE. [Concomitant]
     Active Substance: FUROSEMIDE
     Indication: HYPERTENSION
     Dosage: 40 MG, QD
     Route: 065
  6. IPRATROPIUM BROMIDE W/SALBUTAMOL [Concomitant]
     Active Substance: ALBUTEROL\IPRATROPIUM BROMIDE
     Dosage: 20 MCG +100 MCG/DOSE MDI 4X2 PUFFS
  7. SPIRONOLACTONE. [Concomitant]
     Active Substance: SPIRONOLACTONE
     Indication: HYPERTENSION
     Dosage: 100 MG, QD
     Route: 065
  8. FUROSEMIDE. [Concomitant]
     Active Substance: FUROSEMIDE
     Indication: OEDEMA PERIPHERAL
  9. BUDESONIDE. [Suspect]
     Active Substance: BUDESONIDE
     Indication: CHRONIC OBSTRUCTIVE PULMONARY DISEASE
     Dosage: 200 MCG, BID, FOR 10 YEARS
  10. SPIRONOLACTONE. [Concomitant]
     Active Substance: SPIRONOLACTONE
     Indication: OEDEMA PERIPHERAL
  11. METHYLPREDNISOLONE. [Suspect]
     Active Substance: METHYLPREDNISOLONE
     Indication: CHRONIC OBSTRUCTIVE PULMONARY DISEASE
     Dosage: UNK, 2-3 TIMES A YEAR
     Route: 042
  12. SALBUTAMOL SULFATE [Concomitant]
     Active Substance: ALBUTEROL SULFATE
     Indication: CHRONIC OBSTRUCTIVE PULMONARY DISEASE
     Dosage: 100 MCG/ DOSE, AS NEEDED
  13. DOXAZOSIN [Concomitant]
     Active Substance: DOXAZOSIN\DOXAZOSIN MESYLATE
     Indication: HYPERTENSION
     Dosage: 4 MG, QD
     Route: 065

REACTIONS (3)
  - Pneumonia [Unknown]
  - Osteoporosis [Unknown]
  - Femur fracture [Recovered/Resolved]

NARRATIVE: CASE EVENT DATE: 2014
